FAERS Safety Report 6126755-6 (Version None)
Quarter: 2009Q1

REPORT INFORMATION
  Report Type: 
  Country: None (occurrence: None)
  Receive Date: 20090320
  Receipt Date: 20090319
  Transmission Date: 20090719
  Serious: Yes (Death)
  Sender: FDA-Public Use
  Company Number: PHHY2009CR10168

PATIENT
  Age: 86 Year
  Sex: Male

DRUGS (2)
  1. TRILEPTAL [Suspect]
     Indication: POST HERPETIC NEURALGIA
  2. ANTIHYPERTENSIVE DRUGS [Concomitant]

REACTIONS (1)
  - CEREBROVASCULAR ACCIDENT [None]
